FAERS Safety Report 8558093-6 (Version None)
Quarter: 2012Q3

REPORT INFORMATION
  Report Type: 
  Country: None (occurrence: None)
  Receive Date: 20120801
  Receipt Date: 20120721
  Transmission Date: 20120928
  Serious: Yes (Hospitalization)
  Sender: FDA-Public Use
  Company Number: US-ACTELION-A-NJ2012-62653

PATIENT
  Age: 39 Year
  Sex: Female

DRUGS (2)
  1. ADCIRCA [Concomitant]
  2. TRACLEER [Suspect]
     Indication: PULMONARY ARTERIAL HYPERTENSION
     Dosage: UNK
     Route: 048
     Dates: start: 20020501

REACTIONS (8)
  - CHEST PAIN [None]
  - HYPOTHYROIDISM [None]
  - FUNCTIONAL GASTROINTESTINAL DISORDER [None]
  - FLUID RETENTION [None]
  - PERICARDIAL EFFUSION [None]
  - PULMONARY OEDEMA [None]
  - OEDEMA PERIPHERAL [None]
  - PNEUMONIA [None]
